FAERS Safety Report 5108249-X (Version None)
Quarter: 2006Q3

REPORT INFORMATION
  Report Type: 
  Country: None (occurrence: None)
  Receive Date: 20060919
  Receipt Date: 20060830
  Transmission Date: 20061208
  Serious: Yes (Other)
  Sender: FDA-Public Use
  Company Number: JP-BRISTOL-MYERS SQUIBB COMPANY-13501689

PATIENT
  Age: 39 Year
  Sex: Male

DRUGS (9)
  1. EFAVIRENZ [Interacting]
     Indication: HIV INFECTION
     Route: 048
     Dates: start: 20020124, end: 20060201
  2. RETROVIR [Suspect]
     Indication: HIV INFECTION
     Dosage: 100MG/TID 10/4/97 - 16/1/91, 300MG/DAY 31/1/01 - 23/1/02, 400MG/DAY 24/1/02 - 1/2/06
     Route: 048
     Dates: start: 19970410, end: 20060201
  3. EPIVIR [Suspect]
     Indication: HIV INFECTION
     Dosage: 150 MG TWICE DAILY 10/4/97 - 16/1/01, AND 31/1/01 - 1/2/06
     Route: 048
     Dates: start: 19970410, end: 20060201
  4. DEPROMEL [Interacting]
     Indication: BIPOLAR DISORDER
     Dosage: 150 MG TWICE DAILY FROM 2/12/05 TO 1/2/06 AND 100 MG THREE TIME DAILY FROM 2/2/06 TO UNK.
     Route: 048
     Dates: start: 20051202
  5. DORAL [Interacting]
     Indication: BIPOLAR DISORDER
     Dosage: 30 MG DAILY FROM 12/12/05 TO 1/2/06 AND 2/2/06 TO CONT.
     Route: 048
     Dates: start: 20051212
  6. NEO-MINOPHAGEN C [Concomitant]
     Dates: end: 20060216
  7. NOVOSEVEN [Concomitant]
  8. SILECE [Concomitant]
     Dates: start: 20051202
  9. FEIBA [Concomitant]

REACTIONS (2)
  - DRUG INTERACTION [None]
  - RHABDOMYOLYSIS [None]
